FAERS Safety Report 9382937 (Version 2)
Quarter: 2013Q3

REPORT INFORMATION
  Report Type: Spontaneous
  Country: US (occurrence: US)
  Receive Date: 20130703
  Receipt Date: 20130719
  Transmission Date: 20140515
  Serious: Yes (Other)
  Sender: FDA-Public Use
  Company Number: US-GILEAD-2013-0072981

PATIENT
  Sex: Female

DRUGS (1)
  1. LETAIRIS [Suspect]
     Indication: PULMONARY ARTERIAL HYPERTENSION
     Dosage: 5 MG, QD
     Dates: start: 20130318

REACTIONS (5)
  - Hypotension [Unknown]
  - Dizziness [Unknown]
  - Nasal congestion [Unknown]
  - Oedema [Unknown]
  - Dyspnoea [Unknown]
